FAERS Safety Report 9401129 (Version 2)
Quarter: 2013Q4

REPORT INFORMATION
  Report Type: Report from Study
  Country: FR (occurrence: FR)
  Receive Date: 20130715
  Receipt Date: 20131029
  Transmission Date: 20140711
  Serious: Yes (Death, Hospitalization)
  Sender: FDA-Public Use
  Company Number: FR-ACTELION-A-CH2013-85691

PATIENT
  Age: 64 Year
  Sex: Female
  Weight: 54 kg

DRUGS (6)
  1. TRACLEER [Suspect]
     Indication: SCLERODERMA RENAL CRISIS
     Dosage: 125 MG, BID
     Route: 048
     Dates: end: 20130705
  2. TRACLEER [Suspect]
     Dosage: 62.5 MG, BID
     Route: 048
     Dates: start: 201304
  3. IMUREL [Concomitant]
     Dosage: 50 UNK, OD
  4. LOPRIL [Concomitant]
     Dosage: 25 UNK, TID
  5. NORSET [Concomitant]
     Dosage: 15 UNK, OD
  6. INEXIUM [Concomitant]
     Dosage: 20 UNK, QD

REACTIONS (6)
  - Acute respiratory failure [Fatal]
  - Disease progression [Fatal]
  - Renal failure acute [Not Recovered/Not Resolved]
  - Vomiting [Unknown]
  - Dehydration [Unknown]
  - Food intolerance [Unknown]
